FAERS Safety Report 5217507-X (Version None)
Quarter: 2006Q4

REPORT INFORMATION
  Report Type: 
  Country: None (occurrence: None)
  Receive Date: 20061130
  Receipt Date: 20060712
  Transmission Date: 20070319
  Serious: Yes (Hospitalization)
  Sender: FDA-Public Use
  Company Number: US200603000467

PATIENT
  Age: 44 Year
  Sex: Female
  Weight: 63.5 kg

DRUGS (9)
  1. ZYPREXA [Suspect]
     Dosage: SEE IMAGE
     Route: 048
     Dates: start: 20000601, end: 20001205
  2. ZYPREXA [Suspect]
     Dosage: SEE IMAGE
     Route: 048
     Dates: start: 20001205
  3. PROZAC [Concomitant]
  4. PAXIL [Concomitant]
  5. EFFEXOR [Concomitant]
  6. TRAZODONE HCL [Concomitant]
  7. TENORMIN /NEZ/(ATENOLOL) [Concomitant]
  8. SERZONE [Concomitant]
  9. WELLBUTRIN [Concomitant]

REACTIONS (5)
  - BLOOD CHOLESTEROL ABNORMAL [None]
  - BLOOD TRIGLYCERIDES INCREASED [None]
  - CEREBROVASCULAR ACCIDENT [None]
  - DIABETES MELLITUS [None]
  - WEIGHT INCREASED [None]
